FAERS Safety Report 8965040 (Version 2)
Quarter: 2014Q2

REPORT INFORMATION
  Report Type: Spontaneous
  Country: US (occurrence: US)
  Receive Date: 20121213
  Receipt Date: 20140527
  Transmission Date: 20141212
  Serious: No
  Sender: FDA-Public Use
  Company Number: US-BRISTOL-MYERS SQUIBB COMPANY-16270969

PATIENT
  Age: 73 Year
  Sex: Female
  Weight: 70 kg

DRUGS (7)
  1. PRAVASTATIN SODIUM [Suspect]
     Indication: BLOOD CHOLESTEROL INCREASED
     Dosage: DOSE REDUCED
  2. LOVASTATIN [Suspect]
     Indication: BLOOD CHOLESTEROL INCREASED
  3. DETROL LA [Suspect]
  4. DETROL [Suspect]
  5. ZETIA [Concomitant]
  6. ACTONEL [Concomitant]
  7. RISEDRONATE SODIUM [Concomitant]

REACTIONS (12)
  - Arthralgia [Recovered/Resolved]
  - Fatigue [Recovered/Resolved]
  - Flushing [Recovered/Resolved]
  - Chest pain [Recovered/Resolved]
  - Pain in extremity [Recovered/Resolved]
  - Myalgia [Recovered/Resolved]
  - Rotator cuff syndrome [Unknown]
  - Limb discomfort [Unknown]
  - Oropharyngeal pain [Recovered/Resolved]
  - Musculoskeletal discomfort [Unknown]
  - Musculoskeletal chest pain [Recovered/Resolved]
  - Eructation [Unknown]
